FAERS Safety Report 13705522 (Version 3)
Quarter: 2017Q3

REPORT INFORMATION
  Report Type: Spontaneous
  Country: US (occurrence: US)
  Receive Date: 20170630
  Receipt Date: 20170831
  Transmission Date: 20171127
  Serious: Yes (Hospitalization)
  Sender: FDA-Public Use
  Company Number: US-ASPEN PHARMA TRADING LIMITED US-AS-2017-004533

PATIENT
  Age: 4 Year
  Sex: Male
  Weight: 18.5 kg

DRUGS (13)
  1. THIOGUANINE 40 MG TABLET [Suspect]
     Active Substance: THIOGUANINE
     Indication: ACUTE LYMPHOCYTIC LEUKAEMIA
     Dosage: ON WEDNESDAY AND SUNDAY
     Route: 048
     Dates: start: 20170510
  2. DEXAMETHASONE. [Suspect]
     Active Substance: DEXAMETHASONE
     Dosage: DAYS 15-20
     Route: 048
     Dates: start: 20170426, end: 20170501
  3. CYTARABINE. [Suspect]
     Active Substance: CYTARABINE
     Indication: ACUTE LYMPHOCYTIC LEUKAEMIA
     Route: 058
     Dates: start: 20170510, end: 20170520
  4. PEGASPARGASE [Suspect]
     Active Substance: PEGASPARGASE
     Indication: ACUTE LYMPHOCYTIC LEUKAEMIA
     Dosage: ON DAY 4
     Route: 042
     Dates: start: 20170415
  5. METHOTREXATE. [Suspect]
     Active Substance: METHOTREXATE
     Indication: ACUTE LYMPHOCYTIC LEUKAEMIA
     Dosage: DAY 1
     Route: 037
     Dates: start: 20170412, end: 20170517
  6. THIOGUANINE 40 MG TABLET [Suspect]
     Active Substance: THIOGUANINE
     Dosage: ON MONDAY AND TUESDAY
     Route: 048
     Dates: end: 20170523
  7. PEGASPARGASE [Suspect]
     Active Substance: PEGASPARGASE
     Dosage: SINGE ADMINISTRATION
     Route: 042
     Dates: start: 20170524, end: 20170524
  8. DEXAMETHASONE. [Suspect]
     Active Substance: DEXAMETHASONE
     Indication: ACUTE LYMPHOCYTIC LEUKAEMIA
     Dosage: DAYS 1-7
     Route: 048
     Dates: start: 20170412
  9. INCB018424 [Suspect]
     Active Substance: RUXOLITINIB
     Indication: B PRECURSOR TYPE ACUTE LEUKAEMIA
     Dosage: DAYS 1-14
     Route: 048
     Dates: start: 20170412
  10. VINCRISTINE [Suspect]
     Active Substance: VINCRISTINE
     Indication: ACUTE LYMPHOCYTIC LEUKAEMIA
     Dosage: DAYS 1,8,15
     Route: 037
     Dates: start: 20170412
  11. DOXORUBICIN [Suspect]
     Active Substance: DOXORUBICIN
     Indication: ACUTE LYMPHOCYTIC LEUKAEMIA
     Dosage: ON DAYS 1, 8, 15
     Route: 042
     Dates: start: 20170412, end: 20170426
  12. CYCLOPHOSPHAMIDE. [Suspect]
     Active Substance: CYCLOPHOSPHAMIDE
     Indication: ACUTE LYMPHOCYTIC LEUKAEMIA
     Route: 042
     Dates: start: 20170510, end: 20170510
  13. VINCRISTINE [Suspect]
     Active Substance: VINCRISTINE
     Dosage: SINGLE ADMINISTRATION
     Route: 042
     Dates: start: 20170514, end: 20170524

REACTIONS (5)
  - Vomiting [Recovered/Resolved]
  - Bacterial sepsis [Recovered/Resolved]
  - Mucosal inflammation [Recovered/Resolved]
  - Dehydration [Recovered/Resolved]
  - Bacterial infection [Recovering/Resolving]

NARRATIVE: CASE EVENT DATE: 201705
